FAERS Safety Report 21918799 (Version 2)
Quarter: 2023Q1

REPORT INFORMATION
  Report Type: Spontaneous
  Country: US (occurrence: US)
  Receive Date: 20230127
  Receipt Date: 20230224
  Transmission Date: 20230417
  Serious: No
  Sender: FDA-Public Use
  Company Number: US-SA-SAC20230124002217

PATIENT
  Age: 16 Year
  Sex: Female

DRUGS (2)
  1. FABRAZYME [Suspect]
     Active Substance: AGALSIDASE BETA
     Indication: Fabry^s disease
     Dosage: 1 MG/KG EVERY 2 WEEKS
     Route: 042
     Dates: start: 20201028
  2. FABRAZYME [Suspect]
     Active Substance: AGALSIDASE BETA
     Dosage: 1 MG/KG, QOW
     Route: 042
     Dates: start: 202010

REACTIONS (4)
  - Weight decreased [Unknown]
  - Weight increased [Unknown]
  - Catheter site pain [Unknown]
  - Dizziness [Unknown]

NARRATIVE: CASE EVENT DATE: 20230216
